FAERS Safety Report 22104210 (Version 2)
Quarter: 2023Q2

REPORT INFORMATION
  Report Type: Spontaneous
  Country: US (occurrence: US)
  Receive Date: 20230316
  Receipt Date: 20230522
  Transmission Date: 20230722
  Serious: Yes (Other)
  Sender: FDA-Public Use
  Company Number: US-SMITH AND NEPHEW, INC-2022SMT00116

PATIENT
  Sex: Female
  Weight: 99.32 kg

DRUGS (12)
  1. COLLAGENASE SANTYL [Suspect]
     Active Substance: COLLAGENASE CLOSTRIDIUM HISTOLYTICUM
     Indication: Stasis dermatitis
     Dosage: NICKEL SIZE WORTH ON ONE LEG, ON THE OTHER LEG SHE JUST PUTS A VERY SMALL AMOUNT ON THE AREA AND RUB
     Route: 061
     Dates: start: 2022, end: 202302
  2. COLLAGENASE SANTYL [Suspect]
     Active Substance: COLLAGENASE CLOSTRIDIUM HISTOLYTICUM
     Indication: Skin ulcer
     Dosage: NICKEL SIZE WORTH ON ONE LEG, ON THE OTHER LEG SHE JUST PUTS A VERY SMALL AMOUNT ON THE AREA AND RUB
     Route: 061
     Dates: start: 20230418
  3. DIAL GOLD ANTIBACTERIAL SOAP [Concomitant]
  4. LOSARTAN [Concomitant]
     Active Substance: LOSARTAN
  5. GABAPENTIN [Concomitant]
     Active Substance: GABAPENTIN
  6. VESICARE [Concomitant]
     Active Substance: SOLIFENACIN SUCCINATE
  7. PEPCID [Concomitant]
     Active Substance: FAMOTIDINE
  8. TUMS [Concomitant]
     Active Substance: CALCIUM CARBONATE
  9. VITAMIN B12 [Concomitant]
     Active Substance: CYANOCOBALAMIN
  10. VITAMIN D3 [Concomitant]
     Active Substance: CHOLECALCIFEROL
  11. PROBIOTICS NOS [Concomitant]
     Active Substance: PROBIOTICS NOS
  12. TRIAMCINOLONE [Concomitant]
     Active Substance: TRIAMCINOLONE

REACTIONS (4)
  - Wound infection bacterial [Recovered/Resolved]
  - Wound complication [Recovered/Resolved]
  - Pruritus [Recovered/Resolved]
  - Off label use [Not Recovered/Not Resolved]

NARRATIVE: CASE EVENT DATE: 20220101
